FAERS Safety Report 19265180 (Version 4)
Quarter: 2024Q4

REPORT INFORMATION
  Report Type: Spontaneous
  Country: FR (occurrence: FR)
  Receive Date: 20210517
  Receipt Date: 20241127
  Transmission Date: 20250115
  Serious: Yes (Death, Hospitalization)
  Sender: TEVA
  Company Number: FR-TEVA-2021-FR-1911941

PATIENT
  Age: 74 Year
  Sex: Male
  Weight: 75 kg

DRUGS (1)
  1. AMIODARONE [Suspect]
     Active Substance: AMIODARONE
     Indication: Product used for unknown indication
     Dosage: TEVA
     Route: 065

REACTIONS (10)
  - Acute respiratory failure [Fatal]
  - Asthenia [Unknown]
  - Weight decreased [Unknown]
  - Erythema [Unknown]
  - Oedema peripheral [Unknown]
  - Cardiac arrest [Fatal]
  - Multiple organ dysfunction syndrome [Fatal]
  - Acute respiratory distress syndrome [Fatal]
  - Stenosis [Unknown]
  - Pneumonia [Fatal]

NARRATIVE: CASE EVENT DATE: 20170901
